FAERS Safety Report 16021046 (Version 1)
Quarter: 2019Q1

REPORT INFORMATION
  Report Type: Spontaneous
  Country: US (occurrence: US)
  Receive Date: 20190228
  Receipt Date: 20190228
  Transmission Date: 20190418
  Serious: Yes (Disabling)
  Sender: FDA-Public Use
  Company Number: None

PATIENT
  Age: 45 Year
  Sex: Male
  Weight: 96.75 kg

DRUGS (1)
  1. LOSARTAN POTASSIUM. [Suspect]
     Active Substance: LOSARTAN POTASSIUM
     Indication: HYPERTENSION
     Dosage: ?          QUANTITY:1 TABLET(S);?
     Route: 048
     Dates: start: 20140211, end: 20190225

REACTIONS (6)
  - Chapped lips [None]
  - Sunburn [None]
  - Skin erosion [None]
  - Paraesthesia [None]
  - Lip pain [None]
  - Lip swelling [None]

NARRATIVE: CASE EVENT DATE: 20190217
